FAERS Safety Report 6129663-X (Version None)
Quarter: 2009Q1

REPORT INFORMATION
  Report Type: 
  Country: None (occurrence: None)
  Receive Date: 20090324
  Receipt Date: 20090313
  Transmission Date: 20090719
  Serious: Yes (Life-Threatening, Hospitalization)
  Sender: FDA-Public Use
  Company Number: DE-ELI_LILLY_AND_COMPANY-DE200902002596

PATIENT
  Age: 45 Year
  Sex: Female

DRUGS (9)
  1. CYMBALTA [Suspect]
     Indication: FIBROMYALGIA
     Dosage: 60 MG, DAILY (1/D)
     Route: 048
     Dates: start: 20071001, end: 20081001
  2. ACTOS [Concomitant]
     Dosage: UNK, UNKNOWN
     Route: 065
  3. METFORMIN [Concomitant]
     Dosage: UNK, UNKNOWN
     Route: 065
  4. SIMVASTATIN [Concomitant]
     Dosage: UNK, UNKNOWN
     Route: 065
  5. ROSIGLITAZONE [Concomitant]
     Dosage: UNK, UNKNOWN
     Route: 065
  6. GLIMEPIRIDE [Concomitant]
     Dosage: UNK, UNKNOWN
     Route: 065
  7. FLUPIRTINE [Concomitant]
     Dosage: UNK, UNKNOWN
     Route: 065
  8. DICLOFENAC [Concomitant]
     Dosage: UNK, UNKNOWN
     Route: 065
  9. ANTIINFLAMMATORY/ANTIRHEUMATIC PRODUCTS [Concomitant]
     Dosage: UNK, UNKNOWN
     Route: 065

REACTIONS (2)
  - DRUG INTERACTION [None]
  - HEPATITIS [None]
